FAERS Safety Report 17080172 (Version 1)
Quarter: 2019Q4

REPORT INFORMATION
  Report Type: Spontaneous
  Country: CA (occurrence: CA)
  Receive Date: 20191127
  Receipt Date: 20191127
  Transmission Date: 20200122
  Serious: Yes (Death, Hospitalization)
  Sender: FDA-Public Use
  Company Number: CA-ROCHE-2475996

PATIENT
  Age: 84 Year
  Sex: Female
  Weight: 75 kg

DRUGS (6)
  1. EYLEA [Suspect]
     Active Substance: AFLIBERCEPT
     Indication: MACULAR DEGENERATION
     Dosage: THERAPY DURATION 4.0 YEAR(S) SINGLEUSE VIAL. 2MG/50UL
     Route: 031
  2. AMLODIPINE [Concomitant]
     Active Substance: AMLODIPINE BESYLATE
     Route: 065
  3. ZALTRAP [Suspect]
     Active Substance: ZIV-AFLIBERCEPT
     Indication: MACULAR DEGENERATION
     Dosage: THERAPY DURATION 4.0 YEAR(S)
     Route: 031
  4. AVASTIN [Suspect]
     Active Substance: BEVACIZUMAB
     Indication: MACULAR DEGENERATION
     Dosage: THERAPY DURATION 4.0 YEAR(S)
     Route: 031
  5. ATORVASTATIN [Concomitant]
     Active Substance: ATORVASTATIN
     Route: 065
  6. LUMIGAN [Concomitant]
     Active Substance: BIMATOPROST
     Route: 065

REACTIONS (9)
  - Abdominal pain upper [Fatal]
  - Large intestine perforation [Fatal]
  - Cholecystitis infective [Fatal]
  - Sepsis [Fatal]
  - Diarrhoea [Fatal]
  - Vomiting [Fatal]
  - Organ failure [Fatal]
  - Haemorrhage [Fatal]
  - Surgery [Fatal]
